FAERS Safety Report 5736760-7 (Version None)
Quarter: 2008Q2

REPORT INFORMATION
  Report Type: 
  Country: None (occurrence: None)
  Receive Date: 20080513
  Receipt Date: 20080506
  Transmission Date: 20081010
  Serious: No
  Sender: FDA-Public Use
  Company Number: US-BAXTER-2008BH004556

PATIENT
  Age: 37 Year
  Sex: Male
  Weight: 99 kg

DRUGS (6)
  1. HEPARIN SODIUM [Suspect]
     Indication: DEEP VEIN THROMBOSIS
     Dosage: DOSE UNIT:UNKNOWN
     Route: 042
     Dates: start: 20080325, end: 20080331
  2. HEPARIN SODIUM [Suspect]
     Indication: PULMONARY EMBOLISM
     Dosage: DOSE UNIT:UNKNOWN
     Route: 042
     Dates: start: 20080325, end: 20080331
  3. HEPARIN SODIUM 5,000 UNITS IN DEXTROSE 5% [Suspect]
     Indication: THROMBOSIS
     Dosage: DOSE UNIT:UNKNOWN
     Route: 042
     Dates: start: 20080325, end: 20080331
  4. COUMADIN [Concomitant]
     Indication: THROMBOSIS PROPHYLAXIS
     Route: 048
     Dates: start: 20080314, end: 20080325
  5. COUMADIN [Concomitant]
     Route: 048
     Dates: start: 20080401
  6. COUMADIN [Concomitant]
     Route: 048
     Dates: start: 20080401

REACTIONS (2)
  - ABDOMINAL PAIN [None]
  - CHEST PAIN [None]
